FAERS Safety Report 10044931 (Version 1)
Quarter: 2014Q1

REPORT INFORMATION
  Report Type: Spontaneous
  Country: JP (occurrence: JP)
  Receive Date: 20140328
  Receipt Date: 20140328
  Transmission Date: 20141002
  Serious: Yes (Other)
  Sender: FDA-Public Use
  Company Number: JP-GLAXOSMITHKLINE-B0979762A

PATIENT
  Sex: Female

DRUGS (2)
  1. SERETIDE (50MCG/250MCG) [Suspect]
     Indication: PRODUCT USED FOR UNKNOWN INDICATION
     Route: 055
     Dates: start: 201401
  2. NASONEX [Concomitant]
     Route: 045

REACTIONS (3)
  - Gastrointestinal fungal infection [Recovered/Resolved]
  - Gastrointestinal fungal infection [Unknown]
  - Dysphonia [Unknown]
